FAERS Safety Report 7676693-2 (Version None)
Quarter: 2011Q3

REPORT INFORMATION
  Report Type: 
  Country: None (occurrence: None)
  Receive Date: 20110811
  Receipt Date: 20110808
  Transmission Date: 20111222
  Serious: Yes (Hospitalization)
  Sender: FDA-Public Use
  Company Number: DE-PFIZER INC-2011181063

PATIENT
  Age: 60 Year
  Sex: Male

DRUGS (3)
  1. LORAZEPAM [Suspect]
     Dosage: UNK
  2. ALCOHOL [Suspect]
     Dosage: UNK
  3. LYRICA [Suspect]
     Dosage: UNK

REACTIONS (3)
  - DYSPNOEA [None]
  - ATTENTION DEFICIT/HYPERACTIVITY DISORDER [None]
  - SOMNOLENCE [None]
